FAERS Safety Report 4650185-7 (Version None)
Quarter: 2005Q2

REPORT INFORMATION
  Report Type: 
  Country: None (occurrence: None)
  Receive Date: 20050428
  Receipt Date: 20050415
  Transmission Date: 20051028
  Serious: Yes (Other)
  Sender: FDA-Public Use
  Company Number: 2005060831

PATIENT
  Age: 48 Year
  Sex: Female

DRUGS (2)
  1. BEXTRA [Suspect]
     Indication: POSTOPERATIVE CARE
     Dates: start: 20050314, end: 20050321
  2. CEPHALEXIN MONOHYDRATE [Suspect]
     Indication: ILL-DEFINED DISORDER

REACTIONS (2)
  - ACNE [None]
  - PURULENCE [None]
